FAERS Safety Report 7404946-1 (Version None)
Quarter: 2011Q2

REPORT INFORMATION
  Report Type: 
  Country: None (occurrence: None)
  Receive Date: 20110411
  Receipt Date: 20110330
  Transmission Date: 20111010
  Serious: Yes (Hospitalization, Other)
  Sender: FDA-Public Use
  Company Number: DE-ELI_LILLY_AND_COMPANY-DE201102004154

PATIENT
  Age: 48 Year
  Sex: Male

DRUGS (14)
  1. TRIMIPRAMINE [Concomitant]
  2. RAMIPRIL [Concomitant]
  3. FORTEO [Suspect]
     Indication: OSTEOPOROSIS
     Dosage: UNK, UNK
     Route: 058
     Dates: start: 20101005, end: 20110312
  4. RAMIPRIL [Concomitant]
  5. SYNTARIS [Concomitant]
     Dosage: 1 D/F, UNK
  6. THYRONAJOD [Concomitant]
     Dosage: 75 MG, EACH EVENING
  7. TOPIRAMATE [Concomitant]
     Dosage: 25 MG, 2/D
  8. SIMVASTATIN [Concomitant]
     Dosage: 10 MG, UNK
  9. LAMOTRIGINE [Concomitant]
     Indication: ASTHENIA
  10. CALCIGEN D [Concomitant]
     Dates: end: 20110215
  11. ERGENYL CHRONO [Concomitant]
     Indication: EPILEPSY
     Dosage: UNK, 2/D
     Dates: start: 20110101, end: 20110201
  12. ASPIRIN [Concomitant]
     Dosage: UNK
     Dates: end: 20101101
  13. TRAMADOL HCL [Concomitant]
  14. TOPIRAMATE [Concomitant]
     Dosage: 75 MG, 2/D

REACTIONS (5)
  - ABDOMINAL PAIN [None]
  - INTENTIONAL DRUG MISUSE [None]
  - RENAL DISORDER [None]
  - NEPHROLITHIASIS [None]
  - HYPERCALCAEMIA [None]
